FAERS Safety Report 9174514 (Version 1)
Quarter: 2013Q1

REPORT INFORMATION
  Report Type: Spontaneous
  Country: US (occurrence: US)
  Receive Date: 20130320
  Receipt Date: 20130320
  Transmission Date: 20140127
  Serious: No
  Sender: FDA-Public Use
  Company Number: US-MYLANLABS-2012S1017293

PATIENT
  Age: 44 Year
  Sex: Female

DRUGS (6)
  1. ESTRADIOL TRANSDERMAL SYSTEM, USP [Suspect]
     Indication: HORMONE REPLACEMENT THERAPY
     Dosage: CHANGES EVERY WEEK
     Route: 062
     Dates: start: 201205
  2. ZEBETA [Concomitant]
  3. MAXZIDE [Concomitant]
  4. TANDEM F [Concomitant]
  5. PRILOSEC [Concomitant]
  6. K-DUR [Concomitant]

REACTIONS (3)
  - Application site erythema [Recovered/Resolved]
  - Application site pruritus [Recovered/Resolved]
  - Application site rash [Recovered/Resolved]
